FAERS Safety Report 25592720 (Version 2)
Quarter: 2025Q3

REPORT INFORMATION
  Report Type: Spontaneous
  Country: EU (occurrence: EU)
  Receive Date: 20250722
  Receipt Date: 20250723
  Transmission Date: 20251020
  Serious: Yes (Other)
  Sender: PFIZER
  Company Number: EU-PFIZER INC-PV202500087446

PATIENT
  Age: 33 Year
  Sex: Female

DRUGS (1)
  1. MISOPROSTOL [Suspect]
     Active Substance: MISOPROSTOL
     Indication: Labour induction

REACTIONS (2)
  - General physical health deterioration [Unknown]
  - Off label use [Unknown]
